FAERS Safety Report 7860468-5 (Version None)
Quarter: 2011Q4

REPORT INFORMATION
  Report Type: 
  Country: None (occurrence: None)
  Receive Date: 20111027
  Receipt Date: 20111012
  Transmission Date: 20120403
  Serious: Yes (Hospitalization, Other)
  Sender: FDA-Public Use
  Company Number: US-BAYER-2011-055319

PATIENT
  Age: 37 Year
  Sex: Female
  Weight: 81.633 kg

DRUGS (4)
  1. ZYPREXA [Concomitant]
  2. YASMIN [Suspect]
     Dosage: UNK
     Dates: start: 20050101, end: 20060101
  3. LAMICTAL [Concomitant]
  4. AMBIEN [Concomitant]

REACTIONS (7)
  - PAIN [None]
  - SKIN DISCOLOURATION [None]
  - INJURY [None]
  - OEDEMA PERIPHERAL [None]
  - PULMONARY EMBOLISM [None]
  - DEEP VEIN THROMBOSIS [None]
  - POOR PERIPHERAL CIRCULATION [None]
